FAERS Safety Report 6367957-3 (Version None)
Quarter: 2009Q3

REPORT INFORMATION
  Report Type: 
  Country: None (occurrence: None)
  Receive Date: 20090922
  Receipt Date: 20090728
  Transmission Date: 20100115
  Serious: No
  Sender: FDA-Public Use
  Company Number: A0799119A

PATIENT
  Age: 84 Year
  Sex: Male

DRUGS (2)
  1. SEREVENT [Suspect]
     Dosage: 1PUFF AS REQUIRED
     Route: 055
     Dates: start: 19960101
  2. AZMACORT [Concomitant]

REACTIONS (1)
  - HEART RATE INCREASED [None]
